FAERS Safety Report 16685806 (Version 1)
Quarter: 2019Q3

REPORT INFORMATION
  Report Type: Spontaneous
  Country: US (occurrence: US)
  Receive Date: 20190809
  Receipt Date: 20190809
  Transmission Date: 20191004
  Serious: No
  Sender: FDA-Public Use
  Company Number: US-JNJFOC-20190802911

PATIENT
  Age: 72 Year
  Sex: Female
  Weight: 63.11 kg

DRUGS (1)
  1. TYLENOL REGULAR STRENGTH [Suspect]
     Active Substance: ACETAMINOPHEN
     Indication: HEAD DISCOMFORT
     Dosage: ONE TABLET USUALLY JUST ONCE A DAY
     Route: 048
     Dates: end: 20190801

REACTIONS (1)
  - Incorrect dose administered [Unknown]
